FAERS Safety Report 5756330-4 (Version None)
Quarter: 2008Q2

REPORT INFORMATION
  Report Type: 
  Country: None (occurrence: None)
  Receive Date: 20080603
  Receipt Date: 20080602
  Transmission Date: 20081010
  Serious: Yes (Other)
  Sender: FDA-Public Use
  Company Number: US-BAYER-200811323NA

PATIENT
  Age: 22 Year
  Sex: Female
  Weight: 74 kg

DRUGS (2)
  1. MIRENA [Suspect]
     Indication: CONTRACEPTION
     Route: 015
     Dates: start: 20030722
  2. DEPO-PROVERA [Concomitant]
     Indication: HORMONE REPLACEMENT THERAPY
     Route: 058

REACTIONS (1)
  - IUD MIGRATION [None]
